FAERS Safety Report 9901774 (Version 2)
Quarter: 2014Q1

REPORT INFORMATION
  Report Type: Spontaneous
  Country: US (occurrence: US)
  Receive Date: 20140217
  Receipt Date: 20140217
  Transmission Date: 20141002
  Serious: Yes (Hospitalization)
  Sender: FDA-Public Use
  Company Number: US-GLAXOSMITHKLINE-A0796473A

PATIENT
  Age: 41 Year
  Sex: Female
  Weight: 75 kg

DRUGS (8)
  1. AVANDIA [Suspect]
     Indication: DIABETES MELLITUS
     Dosage: 8MG PER DAY
     Route: 048
     Dates: start: 20020925, end: 200710
  2. LOTREL [Concomitant]
  3. NOVOLIN [Concomitant]
  4. DARVOCET [Concomitant]
  5. MOBIC [Concomitant]
  6. AMBIEN [Concomitant]
  7. CLONIDINE [Concomitant]
  8. GLUCOPHAGE [Concomitant]

REACTIONS (3)
  - Transient ischaemic attack [Not Recovered/Not Resolved]
  - Cardiac failure congestive [Unknown]
  - Cerebrovascular accident [Unknown]
